FAERS Safety Report 14861974 (Version 1)
Quarter: 2018Q2

REPORT INFORMATION
  Report Type: Report from Study
  Country: US (occurrence: US)
  Receive Date: 20180508
  Receipt Date: 20180508
  Transmission Date: 20180711
  Serious: Yes (Hospitalization, Other)
  Sender: FDA-Public Use
  Company Number: US-MYLANLABS-2018M1029302

PATIENT
  Age: 65 Year
  Sex: Female

DRUGS (5)
  1. FOSCARNET [Suspect]
     Active Substance: FOSCARNET
     Dosage: DECREASED TO MAINTENANCE DOSE
     Route: 050
  2. TACROLIMUS. [Suspect]
     Active Substance: TACROLIMUS
     Indication: IMMUNOSUPPRESSANT DRUG THERAPY
     Route: 065
  3. FOSCARNET [Suspect]
     Active Substance: FOSCARNET
     Indication: CYTOMEGALOVIRUS INFECTION
     Dosage: 90 MG/KG, UNK
     Route: 050
  4. MYCOPHENOLATE MOFETIL. [Concomitant]
     Active Substance: MYCOPHENOLATE MOFETIL
     Indication: PRODUCT USED FOR UNKNOWN INDICATION
     Dosage: 500 MG
     Route: 065
  5. SALINE                             /00075401/ [Concomitant]
     Active Substance: SODIUM CHLORIDE
     Indication: DIURETIC THERAPY
     Dosage: RECEIVED PRIOR TO THE FIRST INFUSION OF FOSCARNET
     Route: 065

REACTIONS (3)
  - Diarrhoea [Unknown]
  - Toxicity to various agents [Unknown]
  - Renal tubular necrosis [Unknown]
